FAERS Safety Report 5655042-5 (Version None)
Quarter: 2008Q1

REPORT INFORMATION
  Report Type: 
  Country: None (occurrence: None)
  Receive Date: 20080307
  Receipt Date: 20071102
  Transmission Date: 20080703
  Serious: No
  Sender: FDA-Public Use
  Company Number: A0691248A

PATIENT
  Sex: Male

DRUGS (7)
  1. REQUIP [Suspect]
     Indication: RESTLESS LEGS SYNDROME
     Dosage: 6MG PER DAY
     Route: 048
     Dates: start: 20061101
  2. AVAPRO [Concomitant]
  3. METFORMIN HCL [Concomitant]
  4. ZOLOFT [Concomitant]
  5. CHOLESTEROL REDUCING AGENT [Concomitant]
  6. INSULIN [Concomitant]
  7. GLUCOSAMINE [Concomitant]

REACTIONS (1)
  - DYSKINESIA [None]
